FAERS Safety Report 10051301 (Version 3)
Quarter: 2014Q2

REPORT INFORMATION
  Report Type: Spontaneous
  Country: US (occurrence: US)
  Receive Date: 20140401
  Receipt Date: 20140522
  Transmission Date: 20141212
  Serious: No
  Sender: FDA-Public Use
  Company Number: US-PFIZER INC-2014088185

PATIENT
  Age: 82 Year
  Sex: Female

DRUGS (8)
  1. DONEPEZIL HCL [Suspect]
     Dosage: 10 MG, UNK
  2. PROTONIX [Suspect]
     Dosage: UNK
  3. ATIVAN [Suspect]
     Dosage: UNK
  4. QUETIAPINE FUMARATE [Suspect]
     Dosage: UNK
  5. CITALOPRAM [Suspect]
     Dosage: UNK
  6. NAMENDA [Suspect]
     Dosage: UNK
  7. OMEGA 3 [Suspect]
     Dosage: UNK
  8. ASPIRIN [Suspect]
     Dosage: UNK

REACTIONS (1)
  - Acquired macroglossia [Recovering/Resolving]
